FAERS Safety Report 22266041 (Version 1)
Quarter: 2023Q2

REPORT INFORMATION
  Report Type: Spontaneous
  Country: CZ (occurrence: CZ)
  Receive Date: 20230428
  Receipt Date: 20230428
  Transmission Date: 20230721
  Serious: Yes (Death, Other)
  Sender: FDA-Public Use
  Company Number: CZ-AMGEN-CZESP2023071624

PATIENT

DRUGS (2)
  1. OTEZLA [Suspect]
     Active Substance: APREMILAST
     Indication: Psoriasis
     Dosage: UNK
     Route: 065
  2. OTEZLA [Suspect]
     Active Substance: APREMILAST
     Indication: Psoriatic arthropathy

REACTIONS (17)
  - Neuroendocrine carcinoma of the skin [Fatal]
  - Perirectal abscess [Unknown]
  - Therapeutic product effect decreased [Unknown]
  - Panic attack [Unknown]
  - COVID-19 [Unknown]
  - Adverse drug reaction [Unknown]
  - Nausea [Unknown]
  - Vomiting [Unknown]
  - Abdominal pain [Unknown]
  - Headache [Unknown]
  - Fatigue [Unknown]
  - Insomnia [Unknown]
  - Depression [Unknown]
  - Upper respiratory tract infection [Unknown]
  - Diarrhoea [Unknown]
  - Maternal exposure during pregnancy [Unknown]
  - Surgery [Unknown]
